FAERS Safety Report 9348638 (Version 2)
Quarter: 2013Q3

REPORT INFORMATION
  Report Type: Spontaneous
  Country: FR (occurrence: FR)
  Receive Date: 20130614
  Receipt Date: 20130708
  Transmission Date: 20140515
  Serious: Yes (Death)
  Sender: FDA-Public Use
  Company Number: FR-SANOFI-AVENTIS-2013SA058651

PATIENT
  Age: 76 Year
  Sex: Male

DRUGS (11)
  1. KARDEGIC [Suspect]
     Indication: PRODUCT USED FOR UNKNOWN INDICATION
     Route: 048
     Dates: start: 2013
  2. LOVENOX [Interacting]
     Indication: PRODUCT USED FOR UNKNOWN INDICATION
     Route: 058
     Dates: start: 201301, end: 20130124
  3. SIMVASTATIN [Interacting]
     Indication: PRODUCT USED FOR UNKNOWN INDICATION
     Route: 048
  4. MOPRAL [Interacting]
     Indication: PRODUCT USED FOR UNKNOWN INDICATION
     Route: 048
  5. INEXIUM [Interacting]
     Indication: PRODUCT USED FOR UNKNOWN INDICATION
     Dosage: STRENGTH:20 MG
     Route: 065
  6. PREVISCAN [Concomitant]
     Route: 048
     Dates: start: 2003, end: 20130131
  7. HEMIGOXINE NATIVELLE [Concomitant]
     Route: 048
  8. BISOPROLOL [Concomitant]
     Route: 048
  9. APROVEL [Concomitant]
     Route: 048
  10. METFORMIN [Concomitant]
     Route: 048
     Dates: start: 201301
  11. GANFORT [Concomitant]
     Dosage: ROUTE: OCULAR

REACTIONS (6)
  - Anaemia [Fatal]
  - Overdose [Fatal]
  - Drug interaction [Fatal]
  - Pallor [Fatal]
  - Tachycardia [Fatal]
  - International normalised ratio increased [Fatal]
